FAERS Safety Report 11740492 (Version 2)
Quarter: 2015Q4

REPORT INFORMATION
  Report Type: Spontaneous
  Country: US (occurrence: US)
  Receive Date: 20151110
  Receipt Date: 20151120
  Transmission Date: 20160304
  Serious: No
  Sender: FDA-Public Use
  Company Number: US-ELI_LILLY_AND_COMPANY-US201112005255

PATIENT
  Age: 70 Year
  Sex: Female

DRUGS (3)
  1. FORTEO [Suspect]
     Active Substance: TERIPARATIDE
     Indication: OSTEOPOROSIS
     Dosage: 20 UG, QD
     Dates: start: 201111
  2. COUMADIN [Concomitant]
     Active Substance: WARFARIN SODIUM
  3. FORTEO [Suspect]
     Active Substance: TERIPARATIDE
     Dosage: 20 UG, QD

REACTIONS (11)
  - Bone density decreased [Unknown]
  - Ear pain [Recovering/Resolving]
  - Oropharyngeal discomfort [Recovering/Resolving]
  - Headache [Recovering/Resolving]
  - Pyrexia [Recovering/Resolving]
  - Vomiting [Recovering/Resolving]
  - Oropharyngeal pain [Recovering/Resolving]
  - Injection site bruising [Unknown]
  - Diarrhoea [Recovering/Resolving]
  - Influenza [Recovering/Resolving]
  - Sleep disorder due to a general medical condition [Recovering/Resolving]

NARRATIVE: CASE EVENT DATE: 20111206
